FAERS Safety Report 10484737 (Version 1)
Quarter: 2014Q3

REPORT INFORMATION
  Report Type: Report from Study
  Country: US (occurrence: US)
  Receive Date: 20140930
  Receipt Date: 20140930
  Transmission Date: 20150326
  Serious: Yes (Other)
  Sender: FDA-Public Use
  Company Number: US-B.I. PHARMACEUTICALS,INC./RIDGEFIELD-2014-BI-45957GD

PATIENT

DRUGS (3)
  1. BISACODYL. [Suspect]
     Active Substance: BISACODYL
     Indication: BOWEL PREPARATION
     Dosage: 10 MG
     Route: 048
  2. MIRALAX [Suspect]
     Active Substance: POLYETHYLENE GLYCOL 3350
     Indication: BOWEL PREPARATION
     Dosage: 119 G
     Route: 048
  3. SPORT DRINK [Suspect]
     Active Substance: UNSPECIFIED INGREDIENT
     Indication: BOWEL PREPARATION
     Route: 048

REACTIONS (1)
  - Acute myocardial infarction [Unknown]
